FAERS Safety Report 6887082-2 (Version None)
Quarter: 2010Q3

REPORT INFORMATION
  Report Type: 
  Country: None (occurrence: None)
  Receive Date: 20100708
  Receipt Date: 20091126
  Transmission Date: 20110219
  Serious: Yes (Other)
  Sender: FDA-Public Use
  Company Number: 2009303345

PATIENT
  Sex: Male

DRUGS (1)
  1. CHANTIX [Suspect]
     Dates: start: 20060913, end: 20080825

REACTIONS (2)
  - DEPRESSION [None]
  - SUICIDAL IDEATION [None]
